FAERS Safety Report 5429320-9 (Version None)
Quarter: 2007Q3

REPORT INFORMATION
  Report Type: 
  Country: None (occurrence: None)
  Receive Date: 20070827
  Receipt Date: 20070827
  Transmission Date: 20080115
  Serious: Yes (Life-Threatening)
  Sender: FDA-Public Use
  Company Number: None

PATIENT
  Age: 48 Year
  Sex: Female
  Weight: 98 kg

DRUGS (1)
  1. HEPARIN [Suspect]
     Indication: ANTICOAGULANT THERAPY
     Dosage: 1.5 ML PER LIMB OF CATH ONCE IV
     Route: 042
     Dates: start: 20070809, end: 20070810

REACTIONS (3)
  - GANGRENE [None]
  - WHITE BLOOD CELL COUNT ABNORMAL [None]
  - WHITE CLOT SYNDROME [None]
